FAERS Safety Report 10896047 (Version 1)
Quarter: 2015Q1

REPORT INFORMATION
  Report Type: Spontaneous
  Country: US (occurrence: US)
  Receive Date: 20150308
  Receipt Date: 20150308
  Transmission Date: 20150721
  Serious: Yes (Other)
  Sender: FDA-Public Use
  Company Number: US-MYLANLABS-2015M1006179

PATIENT

DRUGS (1)
  1. FENTANYL. [Suspect]
     Active Substance: FENTANYL
     Indication: ABDOMINAL PAIN UPPER
     Dosage: 25 ?G, QH, CHANGED Q48H
     Route: 062
     Dates: start: 2013, end: 2014

REACTIONS (5)
  - Pneumonia [Recovered/Resolved]
  - Pain [Recovered/Resolved]
  - Pancreatitis acute [Recovered/Resolved]
  - Dyspnoea [Not Recovered/Not Resolved]
  - Weight decreased [Recovered/Resolved]

NARRATIVE: CASE EVENT DATE: 2014
